FAERS Safety Report 9470683 (Version 1)
Quarter: 2013Q3

REPORT INFORMATION
  Report Type: Report from Study
  Country: US (occurrence: US)
  Receive Date: 20130822
  Receipt Date: 20130822
  Transmission Date: 20140515
  Serious: Yes (Hospitalization)
  Sender: FDA-Public Use
  Company Number: US-ABBOTT-13P-163-1133310-00

PATIENT
  Age: 22 Year
  Sex: Male
  Weight: 58.11 kg

DRUGS (10)
  1. HUMIRA [Suspect]
     Indication: CROHN^S DISEASE
     Dates: start: 20130713, end: 20130713
  2. HUMIRA [Suspect]
     Dates: start: 20130727, end: 20130727
  3. HUMIRA [Suspect]
     Dates: start: 20130812
  4. 6-MP [Concomitant]
     Indication: CROHN^S DISEASE
  5. COUMADIN [Concomitant]
     Indication: PULMONARY EMBOLISM
     Dosage: DOSE BASED ON BLOOD TEST
  6. NEXIUM [Concomitant]
     Indication: GASTROOESOPHAGEAL REFLUX DISEASE
  7. MULTIVITAMIN [Concomitant]
     Indication: CROHN^S DISEASE
  8. VITAMIN D3 [Concomitant]
     Indication: CROHN^S DISEASE
  9. VITAMIN B12 [Concomitant]
     Indication: CROHN^S DISEASE
  10. FOLIC ACID [Concomitant]
     Indication: CROHN^S DISEASE

REACTIONS (4)
  - Dyspepsia [Recovered/Resolved]
  - Crohn^s disease [Recovered/Resolved]
  - Abdominal pain [Recovered/Resolved]
  - Fistula [Not Recovered/Not Resolved]
